FAERS Safety Report 10584778 (Version 2)
Quarter: 2014Q4

REPORT INFORMATION
  Report Type: Report from Study
  Country: US (occurrence: US)
  Receive Date: 20141114
  Receipt Date: 20141114
  Transmission Date: 20150529
  Serious: Yes (Other)
  Sender: FDA-Public Use
  Company Number: US-SA-2014SA018212

PATIENT
  Age: 69 Year
  Sex: Female

DRUGS (1)
  1. AUBAGIO [Suspect]
     Active Substance: TERIFLUNOMIDE
     Indication: MULTIPLE SCLEROSIS
     Route: 048
     Dates: start: 20140201

REACTIONS (13)
  - Ear infection [Unknown]
  - Memory impairment [Unknown]
  - Sinusitis [Unknown]
  - Fatigue [Unknown]
  - JC virus test positive [Unknown]
  - Balance disorder [Unknown]
  - Influenza [Unknown]
  - Nasopharyngitis [Unknown]
  - Lower respiratory tract infection [Unknown]
  - Headache [Recovering/Resolving]
  - Upper respiratory tract infection [Unknown]
  - Immune system disorder [Unknown]
  - Mental impairment [Unknown]

NARRATIVE: CASE EVENT DATE: 201402
